FAERS Safety Report 9408706 (Version 1)
Quarter: 2013Q3

REPORT INFORMATION
  Report Type: Spontaneous
  Country: US (occurrence: US)
  Receive Date: 20130718
  Receipt Date: 20130718
  Transmission Date: 20140515
  Serious: Yes (Other)
  Sender: FDA-Public Use
  Company Number: US-B.I. PHARMACEUTICALS,INC./RIDGEFIELD-2013-BI-20642BP

PATIENT
  Sex: Female
  Weight: 68 kg

DRUGS (10)
  1. SPIRIVA [Suspect]
     Indication: ASTHMA
     Dosage: 18 MCG
     Route: 055
     Dates: start: 2011
  2. PREDNISONE ACETATE 1% [Concomitant]
     Indication: CHORIORETINOPATHY
  3. PRILOSEC [Concomitant]
     Indication: GASTROOESOPHAGEAL REFLUX DISEASE
     Dosage: 40 MG
     Route: 048
  4. PROZAC [Concomitant]
     Indication: DEPRESSION
     Dosage: 20 MG
     Route: 048
  5. TRAZADONE [Concomitant]
     Indication: SLEEP DISORDER
     Dosage: 100 MG
     Route: 048
  6. CELEBREX [Concomitant]
     Indication: ARTHRITIS
     Dosage: 200 MG
     Route: 048
  7. DYAZIDE [Concomitant]
     Indication: HYPERTENSION
     Dosage: STRENGTH: 37.5-25MG; DAILY DOSE: 37.5-25MG
     Route: 048
  8. ZOCOR [Concomitant]
     Indication: BLOOD CHOLESTEROL INCREASED
     Dosage: 40 MG
     Route: 048
  9. LIQUID TEARS [Concomitant]
     Indication: DRY EYE
  10. KETORALAC 0.5% [Concomitant]
     Indication: CHORIORETINOPATHY
     Route: 048

REACTIONS (3)
  - Cataract [Recovered/Resolved]
  - Cataract [Recovered/Resolved]
  - Off label use [Not Recovered/Not Resolved]
